FAERS Safety Report 5046863-0 (Version None)
Quarter: 2006Q2

REPORT INFORMATION
  Report Type: 
  Country: None (occurrence: None)
  Receive Date: 20060601
  Receipt Date: 20060213
  Transmission Date: 20061013
  Serious: No
  Sender: FDA-Public Use
  Company Number: 2006PV008607

PATIENT
  Age: 43 Year
  Sex: Female
  Weight: 117.9352 kg

DRUGS (5)
  1. BYETTA [Suspect]
     Indication: DIABETES MELLITUS NON-INSULIN-DEPENDENT
     Dosage: 5 MCG;BID;SC
     Route: 058
     Dates: start: 20060124
  2. AVANDIA [Concomitant]
  3. GLYB/METFORMIN [Concomitant]
  4. DIOVAN [Concomitant]
  5. PROTONIX [Concomitant]

REACTIONS (7)
  - DYSGEUSIA [None]
  - HEADACHE [None]
  - NAUSEA [None]
  - RHINORRHOEA [None]
  - SINUS CONGESTION [None]
  - SNEEZING [None]
  - VOMITING [None]
